FAERS Safety Report 4533952-X (Version None)
Quarter: 2004Q4

REPORT INFORMATION
  Report Type: 
  Country: None (occurrence: None)
  Receive Date: 20041221
  Receipt Date: 20041217
  Transmission Date: 20050328
  Serious: Yes (Hospitalization)
  Sender: FDA-Public Use
  Company Number: 04-12-1758

PATIENT
  Age: 43 Year
  Sex: Female

DRUGS (1)
  1. CLOZAPINE [Suspect]
     Indication: SCHIZOPHRENIA
     Dosage: ORAL
     Route: 048
     Dates: start: 20030201

REACTIONS (5)
  - DELUSION [None]
  - OVERDOSE [None]
  - SUBCUTANEOUS ABSCESS [None]
  - SUICIDE ATTEMPT [None]
  - WEIGHT DECREASED [None]
